FAERS Safety Report 20864378 (Version 1)
Quarter: 2022Q2

REPORT INFORMATION
  Report Type: Report from Study
  Country: US (occurrence: US)
  Receive Date: 20220523
  Receipt Date: 20220523
  Transmission Date: 20220720
  Serious: Yes (Other)
  Sender: FDA-Public Use
  Company Number: US-ABBVIE-22K-163-4405697-00

PATIENT
  Sex: Female

DRUGS (1)
  1. IMBRUVICA [Suspect]
     Active Substance: IBRUTINIB
     Indication: Chronic lymphocytic leukaemia
     Route: 048
     Dates: start: 20170429

REACTIONS (8)
  - Bleeding time prolonged [Unknown]
  - Restless legs syndrome [Unknown]
  - Alopecia [Unknown]
  - Furuncle [Unknown]
  - Cyst [Unknown]
  - Contusion [Unknown]
  - Onychoclasis [Unknown]
  - Neuropathy peripheral [Unknown]
